FAERS Safety Report 21835872 (Version 1)
Quarter: 2023Q1

REPORT INFORMATION
  Report Type: Report from Study
  Country: US (occurrence: US)
  Receive Date: 20230109
  Receipt Date: 20230109
  Transmission Date: 20230417
  Serious: No
  Sender: FDA-Public Use
  Company Number: US-ABBVIE-4242244

PATIENT
  Sex: Female

DRUGS (1)
  1. HUMIRA [Suspect]
     Active Substance: ADALIMUMAB
     Indication: Rheumatoid arthritis
     Route: 058
     Dates: end: 20221130

REACTIONS (6)
  - Gait disturbance [Unknown]
  - Blood cholesterol increased [Recovered/Resolved]
  - Pain [Recovered/Resolved]
  - Injection site bruising [Unknown]
  - Drug ineffective [Unknown]
  - Injection site pain [Not Recovered/Not Resolved]
